FAERS Safety Report 15038432 (Version 2)
Quarter: 2018Q3

REPORT INFORMATION
  Report Type: Spontaneous
  Country: CN (occurrence: CN)
  Receive Date: 20180620
  Receipt Date: 20180705
  Transmission Date: 20181010
  Serious: Yes (Other)
  Sender: FDA-Public Use
  Company Number: CN-IMPAX LABORATORIES, INC-2018-IPXL-02147

PATIENT
  Sex: Female

DRUGS (2)
  1. ALBENZA [Suspect]
     Active Substance: ALBENDAZOLE
     Dosage: 2 DF, (2 SPLITTING TABLETS IN MORING)
     Route: 048
     Dates: start: 20180612, end: 201806
  2. ALBENZA [Suspect]
     Active Substance: ALBENDAZOLE
     Indication: HELMINTHIC INFECTION
     Dosage: 2 DF, UNK
     Route: 048
     Dates: start: 201805

REACTIONS (3)
  - Prescription drug used without a prescription [Unknown]
  - Faeces discoloured [Recovered/Resolved]
  - Helminthic infection [Recovered/Resolved]

NARRATIVE: CASE EVENT DATE: 201806
